FAERS Safety Report 21552538 (Version 3)
Quarter: 2022Q4

REPORT INFORMATION
  Report Type: Report from Study
  Country: US (occurrence: US)
  Receive Date: 20221104
  Receipt Date: 20221213
  Transmission Date: 20230113
  Serious: Yes (Other)
  Sender: FDA-Public Use
  Company Number: US-ABBVIE-4186692

PATIENT
  Sex: Female

DRUGS (1)
  1. IMBRUVICA [Suspect]
     Active Substance: IBRUTINIB
     Indication: Chronic lymphocytic leukaemia
     Dosage: TIME INTERVAL: 0.33333333 DAYS: DOSE DECREASED?LAST ADMINISTRATION DATE WAS 2022.?FORM STRENGTH 1...
     Route: 048
     Dates: start: 202209

REACTIONS (9)
  - Transfusion [Unknown]
  - Red blood cell count decreased [Unknown]
  - Appetite disorder [Unknown]
  - White blood cell count decreased [Unknown]
  - Adverse drug reaction [Unknown]
  - Feeling abnormal [Unknown]
  - Weight decreased [Unknown]
  - Feeding disorder [Unknown]
  - Haemoglobin decreased [Unknown]
